FAERS Safety Report 20999324 (Version 1)
Quarter: 2022Q2

REPORT INFORMATION
  Report Type: Spontaneous
  Country: US (occurrence: None)
  Receive Date: 20220623
  Receipt Date: 20220623
  Transmission Date: 20220721
  Serious: Yes (Death)
  Sender: FDA-Public Use
  Company Number: None

PATIENT
  Age: 75 Year
  Sex: Male

DRUGS (1)
  1. ZOLINZA [Suspect]
     Active Substance: VORINOSTAT
     Indication: Cutaneous T-cell lymphoma stage IV
     Dosage: OTHER QUANTITY : 4 CAPSULES ;?FREQUENCY : DAILY;?
     Route: 048
     Dates: start: 20220218, end: 20220509

REACTIONS (1)
  - Renal failure [None]

NARRATIVE: CASE EVENT DATE: 20220623
